FAERS Safety Report 9188482 (Version 2)
Quarter: 2013Q2

REPORT INFORMATION
  Report Type: Report from Study
  Country: NL (occurrence: NL)
  Receive Date: 20121205
  Receipt Date: 20130501
  Transmission Date: 20140414
  Serious: Yes (Other)
  Sender: FDA-Public Use
  Company Number: PHHO2012NL017166

PATIENT
  Age: 65 Year
  Sex: Female

DRUGS (3)
  1. AMOXICILLIN [Suspect]
     Dosage: 500 MG, TID (500 MG 3DD)
     Dates: start: 20121104, end: 20121111
  2. NO TREATMENT RECEIVED [Suspect]
     Indication: RENAL CELL CARCINOMA
     Dosage: NO TREATMENT RECEIVED
  3. VOTRIENT [Suspect]
     Indication: RENAL CELL CARCINOMA
     Dosage: 300 MG, QD (300 MG, 1DD)
     Route: 048
     Dates: start: 20121016, end: 20121128

REACTIONS (1)
  - Hepatotoxicity [Recovered/Resolved]
